FAERS Safety Report 7444406-5 (Version None)
Quarter: 2011Q2

REPORT INFORMATION
  Report Type: 
  Country: None (occurrence: None)
  Receive Date: 20110429
  Receipt Date: 20110419
  Transmission Date: 20111010
  Serious: Yes (Hospitalization, Other)
  Sender: FDA-Public Use
  Company Number: US-BAYER-2011-012424

PATIENT
  Age: 23 Year
  Sex: Female
  Weight: 52.154 kg

DRUGS (3)
  1. IBUPROFEN [Concomitant]
     Dosage: 600 MG, QID
     Dates: start: 20101201, end: 20110228
  2. MIRENA [Suspect]
     Indication: CONTRACEPTION
     Dosage: 20 ?G, CONT
     Dates: start: 20090215, end: 20110303
  3. VICODIN [Concomitant]
     Dosage: 500 MG, QID
     Dates: start: 20110301, end: 20110310

REACTIONS (4)
  - UTERINE PERFORATION [None]
  - ABDOMINAL PAIN [None]
  - DEVICE DISLOCATION [None]
  - PROCEDURAL PAIN [None]
